FAERS Safety Report 18775569 (Version 1)
Quarter: 2021Q1

REPORT INFORMATION
  Report Type: Spontaneous
  Country: ES (occurrence: ES)
  Receive Date: 20210122
  Receipt Date: 20210122
  Transmission Date: 20210419
  Serious: Yes (Other)
  Sender: FDA-Public Use
  Company Number: NVSC2021ES014440

PATIENT
  Age: 22 Year
  Sex: Female

DRUGS (3)
  1. TETRACYCLINE [Suspect]
     Active Substance: TETRACYCLINE
     Indication: HIDRADENITIS
     Dosage: 200 PULSES, BID
     Route: 048
  2. RIFAMPICIN [Suspect]
     Active Substance: RIFAMPIN
     Indication: HIDRADENITIS
     Dosage: 600 MG, QD
     Route: 065
  3. CLINDAMYCIN. [Suspect]
     Active Substance: CLINDAMYCIN
     Indication: HIDRADENITIS
     Dosage: 600 MG, QD
     Route: 065

REACTIONS (2)
  - Product use in unapproved indication [Unknown]
  - Condition aggravated [Unknown]
